FAERS Safety Report 7437866-7 (Version None)
Quarter: 2011Q2

REPORT INFORMATION
  Report Type: 
  Country: None (occurrence: None)
  Receive Date: 20110426
  Receipt Date: 20110420
  Transmission Date: 20111010
  Serious: Yes (Other)
  Sender: FDA-Public Use
  Company Number: A0923779A

PATIENT
  Age: 7 Year
  Sex: Male

DRUGS (2)
  1. ZOFRAN [Suspect]
     Indication: DEHYDRATION
     Route: 042
     Dates: start: 20110410
  2. NO CONCURRENT MEDICATION [Concomitant]

REACTIONS (2)
  - BLINDNESS UNILATERAL [None]
  - TUNNEL VISION [None]
